FAERS Safety Report 26001860 (Version 2)
Quarter: 2025Q4

REPORT INFORMATION
  Report Type: Report from Study
  Country: IL (occurrence: IL)
  Receive Date: 20251105
  Receipt Date: 20251229
  Transmission Date: 20260118
  Serious: Yes (Other)
  Sender: SANDOZ
  Company Number: IL-SANDOZ-SDZ2024IL108298

PATIENT
  Age: 75 Year
  Sex: Female

DRUGS (3)
  1. HYRIMOZ [Suspect]
     Active Substance: ADALIMUMAB-ADAZ
     Indication: Psoriasis
     Dosage: 40 MG; AFTER WEEK 40
  2. HYRIMOZ [Suspect]
     Active Substance: ADALIMUMAB-ADAZ
     Dosage: 40 MG, Q2W (ONCE EVERY TWO WEEKS)
     Dates: start: 20241006
  3. HYRIMOZ [Suspect]
     Active Substance: ADALIMUMAB-ADAZ

REACTIONS (3)
  - General physical health deterioration [Unknown]
  - Insomnia [Unknown]
  - Psoriasis [Unknown]

NARRATIVE: CASE EVENT DATE: 20241006
